FAERS Safety Report 7374972-X (Version None)
Quarter: 2011Q1

REPORT INFORMATION
  Report Type: 
  Country: None (occurrence: None)
  Receive Date: 20110325
  Receipt Date: 20110321
  Transmission Date: 20110831
  Serious: Yes (Death, Other)
  Sender: FDA-Public Use
  Company Number: PHHY2011KE23799

PATIENT

DRUGS (2)
  1. MYFORTIC [Suspect]
     Dosage: 360 MG, BID
  2. NEORAL [Suspect]
     Dosage: 325 MG, BID

REACTIONS (2)
  - CARDIAC ARREST [None]
  - DEATH [None]
